FAERS Safety Report 17546232 (Version 26)
Quarter: 2025Q4

REPORT INFORMATION
  Report Type: Report from Study
  Country: US (occurrence: US)
  Receive Date: 20200316
  Receipt Date: 20251218
  Transmission Date: 20260118
  Serious: Yes (Other)
  Sender: TAKEDA
  Company Number: US-SHIRE-US202009800

PATIENT
  Age: 47 Year
  Sex: Female
  Weight: 68 kg

DRUGS (35)
  1. .ALPHA.1-PROTEINASE INHIBITOR HUMAN [Suspect]
     Active Substance: .ALPHA.1-PROTEINASE INHIBITOR HUMAN
     Indication: Emphysema
     Dosage: 60 MILLIGRAM/KILOGRAM, 1/WEEK
     Dates: start: 20131202
  2. .ALPHA.1-PROTEINASE INHIBITOR HUMAN [Suspect]
     Active Substance: .ALPHA.1-PROTEINASE INHIBITOR HUMAN
     Indication: Alpha-1 antitrypsin deficiency
     Dosage: 60 MILLIGRAM/KILOGRAM, 1/WEEK
  3. .ALPHA.1-PROTEINASE INHIBITOR HUMAN [Suspect]
     Active Substance: .ALPHA.1-PROTEINASE INHIBITOR HUMAN
     Dosage: 4312 MILLIGRAM, 1/WEEK
  4. .ALPHA.1-PROTEINASE INHIBITOR HUMAN [Suspect]
     Active Substance: .ALPHA.1-PROTEINASE INHIBITOR HUMAN
     Dosage: 60 MILLIGRAM/KILOGRAM, 1/WEEK
  5. NORCO [Concomitant]
     Active Substance: ACETAMINOPHEN\HYDROCODONE BITARTRATE
     Dosage: UNK
  6. DIPHENHYDRAMINE [Concomitant]
     Active Substance: DIPHENHYDRAMINE
     Dosage: UNK
  7. HEPARIN [Concomitant]
     Active Substance: HEPARIN SODIUM
     Dosage: UNK
  8. LIDOCAINE [Concomitant]
     Active Substance: LIDOCAINE
     Dosage: UNK
  9. SODIUM CHLORIDE [Concomitant]
     Active Substance: SODIUM CHLORIDE
     Dosage: UNK
  10. EPINEPHRINE [Concomitant]
     Active Substance: EPINEPHRINE
     Dosage: UNK
  11. NIACIN [Concomitant]
     Active Substance: NIACIN
     Dosage: UNK
  12. ALBUTEROL SULFATE [Concomitant]
     Active Substance: ALBUTEROL SULFATE
     Dosage: UNK
  13. OMEPRAZOLE [Concomitant]
     Active Substance: OMEPRAZOLE
     Dosage: UNK
  14. METOPROLOL TARTRATE [Concomitant]
     Active Substance: METOPROLOL TARTRATE
     Dosage: UNK
  15. SYMBICORT [Concomitant]
     Active Substance: BUDESONIDE\FORMOTEROL FUMARATE DIHYDRATE
     Dosage: UNK
  16. LISINOPRIL [Concomitant]
     Active Substance: LISINOPRIL
     Dosage: UNK
  17. CANNABIS SATIVA SEED OIL\HERBALS [Concomitant]
     Active Substance: CANNABIS SATIVA SEED OIL\HERBALS
     Dosage: UNK
  18. LIDOCAINE\PRILOCAINE [Concomitant]
     Active Substance: LIDOCAINE\PRILOCAINE
     Dosage: UNK
  19. ACETAMINOPHEN [Concomitant]
     Active Substance: ACETAMINOPHEN
     Dosage: UNK
  20. HYDROCODONE [Concomitant]
     Active Substance: HYDROCODONE
     Dosage: UNK
  21. SODIUM CHLORIDE [Concomitant]
     Active Substance: SODIUM CHLORIDE
     Dosage: UNK
  22. LINZESS [Concomitant]
     Active Substance: LINACLOTIDE
     Dosage: UNK
  23. DIAZEPAM [Concomitant]
     Active Substance: DIAZEPAM
     Dosage: UNK
  24. HYDROCHLOROTHIAZIDE [Concomitant]
     Active Substance: HYDROCHLOROTHIAZIDE
     Dosage: UNK
  25. CYCLOBENZAPRINE [Concomitant]
     Active Substance: CYCLOBENZAPRINE
     Dosage: UNK
  26. CELEBREX [Concomitant]
     Active Substance: CELECOXIB
     Dosage: UNK
  27. SPIRIVA RESPIMAT [Concomitant]
     Active Substance: TIOTROPIUM BROMIDE
     Dosage: UNK
  28. LOSARTAN POTASSIUM [Concomitant]
     Active Substance: LOSARTAN POTASSIUM
     Dosage: UNK
  29. NUCALA [Concomitant]
     Active Substance: MEPOLIZUMAB
     Indication: Product used for unknown indication
     Dosage: UNK
  30. ESTRADIOL [Concomitant]
     Active Substance: ESTRADIOL
     Dosage: UNK UNK, 1/WEEK
  31. Lmx [Concomitant]
     Indication: Product used for unknown indication
     Dosage: UNK
  32. DIPHENHYDRAMINE HYDROCHLORIDE [Concomitant]
     Active Substance: DIPHENHYDRAMINE HYDROCHLORIDE
     Dosage: UNK
  33. CYCLOBENZAPRINE HYDROCHLORIDE [Concomitant]
     Active Substance: CYCLOBENZAPRINE HYDROCHLORIDE
     Dosage: UNK
  34. LOSARTAN [Concomitant]
     Active Substance: LOSARTAN
  35. ALBUTEROL SULFATE [Concomitant]
     Active Substance: ALBUTEROL SULFATE
     Dosage: UNK

REACTIONS (17)
  - Staphylococcal infection [Recovered/Resolved]
  - Catheter site infection [Recovered/Resolved]
  - Vein rupture [Unknown]
  - Rib fracture [Unknown]
  - Colitis [Unknown]
  - Nasopharyngitis [Unknown]
  - Infection [Recovered/Resolved]
  - Suture rupture [Unknown]
  - Arthritis [Unknown]
  - COVID-19 [Unknown]
  - Illness [Unknown]
  - Device occlusion [Unknown]
  - Inappropriate schedule of product administration [Unknown]
  - Sinusitis [Unknown]
  - Malaise [Unknown]
  - Dyspnoea [Unknown]
  - Product dose omission issue [Unknown]
